FAERS Safety Report 13196649 (Version 2)
Quarter: 2017Q1

REPORT INFORMATION
  Report Type: Spontaneous
  Country: BR (occurrence: BR)
  Receive Date: 20170208
  Receipt Date: 20170214
  Transmission Date: 20170428
  Serious: Yes (Other)
  Sender: FDA-Public Use
  Company Number: BR-PFIZER INC-2017047051

PATIENT
  Age: 61 Year
  Sex: Female
  Weight: 58 kg

DRUGS (5)
  1. DRAMIN B6 [Concomitant]
     Indication: LABYRINTHITIS
     Dosage: 1 DF, 1X/DAY (MORNING)
     Route: 048
     Dates: start: 2014
  2. CELEBRA [Suspect]
     Active Substance: CELECOXIB
     Indication: PAIN IN EXTREMITY
     Dosage: 1 DF, 2X/DAY
     Route: 048
     Dates: start: 2015
  3. LIPITOR [Suspect]
     Active Substance: ATORVASTATIN CALCIUM
     Indication: BLOOD CHOLESTEROL
     Dosage: 1 TABLET AFTER DINNER
     Route: 048
     Dates: start: 2014
  4. NORVASC [Suspect]
     Active Substance: AMLODIPINE BESYLATE
     Indication: HYPERTENSION
     Dosage: 1 TABLET/DAY
     Route: 048
     Dates: start: 2014
  5. OLMETEC [Suspect]
     Active Substance: OLMESARTAN MEDOXOMIL
     Indication: HYPERTENSION
     Dosage: 1 TABLET/DAY
     Route: 048
     Dates: start: 2014

REACTIONS (8)
  - Pain in extremity [Unknown]
  - Cyst [Unknown]
  - Chondropathy [Unknown]
  - Tendon rupture [Unknown]
  - Intentional product misuse [Unknown]
  - Osteoporosis [Unknown]
  - Peripheral swelling [Unknown]
  - Gait disturbance [Unknown]
